FAERS Safety Report 13516928 (Version 1)
Quarter: 2017Q2

REPORT INFORMATION
  Report Type: Spontaneous
  Country: US (occurrence: US)
  Receive Date: 20170505
  Receipt Date: 20170505
  Transmission Date: 20170830
  Serious: No
  Sender: FDA-Public Use
  Company Number: US-PFIZER INC-2017196041

PATIENT
  Age: 57 Year
  Sex: Female
  Weight: 62 kg

DRUGS (3)
  1. EUCRISA [Suspect]
     Active Substance: CRISABOROLE
     Indication: ERYTHEMA OF EYELID
     Dosage: UNK
     Dates: start: 20170427
  2. EUCRISA [Suspect]
     Active Substance: CRISABOROLE
     Indication: EYELID EXFOLIATION
  3. EUCRISA [Suspect]
     Active Substance: CRISABOROLE
     Indication: PRURITUS

REACTIONS (1)
  - Application site pain [Unknown]
